FAERS Safety Report 11899249 (Version 1)
Quarter: 2016Q1

REPORT INFORMATION
  Report Type: Spontaneous
  Country: GB (occurrence: GB)
  Receive Date: 20160108
  Receipt Date: 20160108
  Transmission Date: 20160526
  Serious: Yes (Hospitalization)
  Sender: FDA-Public Use
  Company Number: GB-MALLINCKRODT-T201506057

PATIENT
  Age: 69 Year
  Sex: Male

DRUGS (1)
  1. OPTIRAY 300 [Suspect]
     Active Substance: IOVERSOL
     Indication: COMPUTERISED TOMOGRAM ABDOMEN
     Dosage: 100 ML, SINGLE, OPTIVANTAGE INJECTOR AND FLOW RATE: 3 ML/SEC.
     Route: 042
     Dates: start: 20151218, end: 20151218

REACTIONS (4)
  - Rash erythematous [Unknown]
  - Vomiting [Unknown]
  - Feeling hot [Unknown]
  - Dysphagia [Unknown]

NARRATIVE: CASE EVENT DATE: 20151218
